FAERS Safety Report 25669427 (Version 1)
Quarter: 2025Q3

REPORT INFORMATION
  Report Type: Spontaneous
  Country: GB (occurrence: GB)
  Receive Date: 20250812
  Receipt Date: 20250812
  Transmission Date: 20251021
  Serious: Yes (Hospitalization, Other)
  Sender: JOHNSON AND JOHNSON
  Company Number: GB-JNJFOC-20250810096

PATIENT
  Age: 50 Year
  Sex: Male

DRUGS (2)
  1. RYBREVANT [Suspect]
     Active Substance: AMIVANTAMAB-VMJW
     Indication: Product used for unknown indication
     Route: 042
     Dates: start: 20250728
  2. LAZERTINIB [Suspect]
     Active Substance: LAZERTINIB
     Indication: Product used for unknown indication
     Route: 048
     Dates: start: 20250728

REACTIONS (2)
  - Infusion related reaction [Recovered/Resolved]
  - Pleural effusion [Unknown]
